FAERS Safety Report 4292791-8 (Version None)
Quarter: 2004Q1

REPORT INFORMATION
  Report Type: 
  Country: None (occurrence: None)
  Receive Date: 20040210
  Receipt Date: 20040126
  Transmission Date: 20041129
  Serious: Yes (Hospitalization)
  Sender: FDA-Public Use
  Company Number: 179496

PATIENT
  Sex: Female

DRUGS (5)
  1. AVONEX [Suspect]
     Indication: MULTIPLE SCLEROSIS
     Dates: start: 20020701
  2. SANDOGLOBULIN [Concomitant]
  3. ZOVIRAX (BURROUGHS^ [Concomitant]
  4. ERYTHROMYCIN [Concomitant]
  5. IMMUNE GLOBULIN INTRAVENOUS (HUMAN) [Concomitant]

REACTIONS (4)
  - CHEST DISCOMFORT [None]
  - HAEMOPTYSIS [None]
  - IMMUNE SYSTEM DISORDER [None]
  - RHINITIS [None]
